FAERS Safety Report 13802309 (Version 23)
Quarter: 2024Q3

REPORT INFORMATION
  Report Type: Spontaneous
  Country: US (occurrence: US)
  Receive Date: 20170728
  Receipt Date: 20240930
  Transmission Date: 20241017
  Serious: No
  Sender: PFIZER
  Company Number: US-PFIZER INC-2017328467

PATIENT
  Age: 55 Year
  Sex: Female
  Weight: 57 kg

DRUGS (7)
  1. ESTRING [Suspect]
     Active Substance: ESTRADIOL
     Indication: Dyspareunia
     Dosage: 2 MG, EVERY 3 MONTHS
     Route: 067
     Dates: start: 2017, end: 201801
  2. ESTRING [Suspect]
     Active Substance: ESTRADIOL
     Indication: Atrophic vulvovaginitis
     Dosage: UNK, ALTERNATE DAY (INSERT 0.1 MG/GM VAGINAL CREAM MONDAY/WEDNESDAY/FRIDAY)
  3. ESTRING [Suspect]
     Active Substance: ESTRADIOL
     Indication: Vulvovaginal pain
     Dosage: 7.5 MCG/24 H, Q90 DAYS
     Route: 067
     Dates: start: 20240823
  4. ESTRING [Suspect]
     Active Substance: ESTRADIOL
     Indication: Urinary incontinence
  5. ESTRING [Suspect]
     Active Substance: ESTRADIOL
     Indication: Vulvovaginal dryness
  6. WILD YAM [Concomitant]
     Active Substance: DIOSCOREA VILLOSA ROOT
     Dosage: UNK UNK, DAILY (1 OF 2 CAPS DAILY 400MG EACH) (PERIODICALLY LAST 6-8 WKS)
  7. PROGESTERONE [Concomitant]
     Active Substance: PROGESTERONE
     Dosage: UNK

REACTIONS (19)
  - Therapeutic product effect decreased [Unknown]
  - Therapeutic response unexpected [Unknown]
  - Vulvovaginal mycotic infection [Recovering/Resolving]
  - Tenderness [Not Recovered/Not Resolved]
  - Urethral pain [Recovered/Resolved]
  - Bacterial infection [Recovering/Resolving]
  - Feeling abnormal [Unknown]
  - Fluid retention [Unknown]
  - Abdominal distension [Unknown]
  - Alopecia [Unknown]
  - Anxiety [Unknown]
  - Stress [Unknown]
  - Confusional state [Unknown]
  - Hyperhidrosis [Unknown]
  - Depression [Unknown]
  - Affective disorder [Unknown]
  - Incorrect dose administered [Unknown]
  - Off label use [Unknown]
  - Product use issue [Unknown]

NARRATIVE: CASE EVENT DATE: 20170101
